FAERS Safety Report 6055655-5 (Version None)
Quarter: 2009Q1

REPORT INFORMATION
  Report Type: 
  Country: None (occurrence: None)
  Receive Date: 20090128
  Receipt Date: 20090120
  Transmission Date: 20090719
  Serious: Yes (Hospitalization)
  Sender: FDA-Public Use
  Company Number: PT-EISAI MEDICAL RESEARCH-E2090-00633-SPO-PT

PATIENT
  Age: 29 Year
  Sex: Male
  Weight: 85 kg

DRUGS (3)
  1. ZONEGRAN [Suspect]
     Indication: EPILEPSY
     Route: 048
     Dates: end: 20090101
  2. VALPROATE SODIUM [Concomitant]
     Indication: EPILEPSY
  3. LAMOTRIGINE [Concomitant]
     Indication: EPILEPSY

REACTIONS (1)
  - RASH GENERALISED [None]
